FAERS Safety Report 13665510 (Version 1)
Quarter: 2017Q2

REPORT INFORMATION
  Report Type: Spontaneous
  Country: GB (occurrence: GB)
  Receive Date: 20170619
  Receipt Date: 20170619
  Transmission Date: 20170830
  Serious: Yes (Other)
  Sender: FDA-Public Use
  Company Number: GB-MYLANLABS-2017M1036145

PATIENT

DRUGS (4)
  1. DOXYCYCLINE. [Suspect]
     Active Substance: DOXYCYCLINE
     Dates: start: 20170526
  2. CLARITHROMYCIN. [Concomitant]
     Active Substance: CLARITHROMYCIN
     Dates: start: 20170526
  3. CYCLIZINE [Concomitant]
     Active Substance: CYCLIZINE
     Dosage: BEFORE MEALS
     Dates: start: 20170526
  4. ERYTHROMYCIN. [Concomitant]
     Active Substance: ERYTHROMYCIN
     Dates: start: 20170315, end: 20170322

REACTIONS (2)
  - Vomiting [Recovering/Resolving]
  - Abdominal pain [Unknown]

NARRATIVE: CASE EVENT DATE: 20170526
